FAERS Safety Report 24189290 (Version 1)
Quarter: 2024Q3

REPORT INFORMATION
  Report Type: Spontaneous
  Country: US (occurrence: US)
  Receive Date: 20240808
  Receipt Date: 20240808
  Transmission Date: 20241017
  Serious: Yes (Other)
  Sender: BLUEPRINT MEDICINES
  Company Number: US-BLUEPRINT MEDICINES CORPORATION-2024BUS004455

PATIENT

DRUGS (1)
  1. GAVRETO [Suspect]
     Active Substance: PRALSETINIB
     Indication: Thyroid cancer
     Dosage: 300 MILLIGRAM, QD
     Route: 048
     Dates: start: 20240709

REACTIONS (8)
  - Muscle spasms [Unknown]
  - Product dose omission issue [Unknown]
  - Memory impairment [Unknown]
  - Dehydration [Unknown]
  - Foot fracture [Unknown]
  - Muscle injury [Unknown]
  - Back pain [Unknown]
  - Fatigue [Unknown]
